FAERS Safety Report 7608152 (Version 6)
Quarter: 2017Q3

REPORT INFORMATION
  Report Type: Spontaneous
  Country: US (occurrence: US)
  Receive Date: 20100927
  Receipt Date: 20170901
  Transmission Date: 20171128
  Serious: Yes (Hospitalization, Other)
  Sender: FDA-Public Use
  Company Number: US-ASTRAZENECA-2008UW24892

PATIENT
  Age: 59 Year
  Sex: Female
  Weight: 74.8 kg

DRUGS (9)
  1. MULTIVITAMIN [Concomitant]
     Active Substance: VITAMINS
     Indication: ROUTINE HEALTH MAINTENANCE
     Dosage: DAILY
     Dates: start: 1967
  2. VALIUM [Concomitant]
     Active Substance: DIAZEPAM
     Indication: ANXIETY
     Dates: start: 1977
  3. ARIMIDEX [Suspect]
     Active Substance: ANASTROZOLE
     Indication: BREAST CANCER
     Route: 048
     Dates: start: 20081029
  4. ARIMIDEX [Suspect]
     Active Substance: ANASTROZOLE
     Indication: BREAST CANCER
     Route: 048
     Dates: start: 2014
  5. TAMOXIFEN [Suspect]
     Active Substance: TAMOXIFEN
     Route: 048
  6. DIAZEPAM. [Concomitant]
     Active Substance: DIAZEPAM
     Indication: ANXIETY
     Route: 048
     Dates: start: 1981
  7. VITAMIN D3 [Concomitant]
     Active Substance: CHOLECALCIFEROL
     Indication: SUPPLEMENTATION THERAPY
     Dosage: DAILY
     Route: 048
  8. PROBIOTIC [Concomitant]
     Active Substance: PROBIOTICS NOS
     Indication: DYSPEPSIA
     Dosage: DAILY
     Dates: start: 2016
  9. VITAMIN C [Concomitant]
     Active Substance: ASCORBIC ACID
     Indication: SUPPLEMENTATION THERAPY
     Dosage: DAILY
     Route: 048

REACTIONS (20)
  - Leukaemia [Unknown]
  - Gallbladder disorder [Unknown]
  - Chest pain [Unknown]
  - Back pain [Unknown]
  - Stress [Unknown]
  - Weight increased [Unknown]
  - Abdominal discomfort [Unknown]
  - Bundle branch block right [Unknown]
  - Gastric disorder [Unknown]
  - Circulatory collapse [Recovered/Resolved]
  - Bone decalcification [Unknown]
  - Peripheral swelling [Not Recovered/Not Resolved]
  - Extra dose administered [Unknown]
  - Breast cancer [Unknown]
  - Malaise [Unknown]
  - Chronic lymphocytic leukaemia [Unknown]
  - Lower limb fracture [Unknown]
  - Skin cancer [Unknown]
  - Bone cancer [Unknown]
  - Anxiety [Unknown]

NARRATIVE: CASE EVENT DATE: 2000
